FAERS Safety Report 4384028-6 (Version None)
Quarter: 2004Q2

REPORT INFORMATION
  Report Type: 
  Country: None (occurrence: None)
  Receive Date: 20040621
  Receipt Date: 20040608
  Transmission Date: 20050107
  Serious: Yes (Other)
  Sender: FDA-Public Use
  Company Number: HQWYE400609JUN04

PATIENT
  Age: 30 Year
  Sex: Female

DRUGS (1)
  1. ZOSYN [Suspect]
     Indication: SKIN TEST
     Dates: start: 20040604, end: 20040604

REACTIONS (2)
  - SWELLING FACE [None]
  - URTICARIA GENERALISED [None]
